FAERS Safety Report 16373524 (Version 1)
Quarter: 2019Q2

REPORT INFORMATION
  Report Type: Spontaneous
  Country: US (occurrence: US)
  Receive Date: 20190425
  Receipt Date: 20190425
  Transmission Date: 20190711
  Serious: Yes (Hospitalization)
  Sender: FDA-Public Use
  Company Number: None

PATIENT
  Age: 11 Year
  Sex: Male

DRUGS (2)
  1. ZENPEP [Suspect]
     Active Substance: PANCRELIPASE AMYLASE\PANCRELIPASE LIPASE\PANCRELIPASE PROTEASE
     Dosage: TAKE W/MEALS+SNACKS; AS NEEDED PO?
     Route: 048
     Dates: start: 2018
  2. PULMOZYME [Suspect]
     Active Substance: DORNASE ALFA
     Dosage: USE 1 VIAL ONCE DAILY PO
     Route: 048
     Dates: start: 2017

REACTIONS (2)
  - Cystic fibrosis [None]
  - Condition aggravated [None]

NARRATIVE: CASE EVENT DATE: 20190424
